FAERS Safety Report 8825605 (Version 2)
Quarter: 2012Q4

REPORT INFORMATION
  Report Type: 
  Country: US (occurrence: US)
  Receive Date: 20121004
  Receipt Date: 20121109
  Transmission Date: 20130627
  Serious: Yes (Hospitalization)
  Sender: FDA-Public Use
  Company Number: US-PFIZER INC-2012242006

PATIENT
  Age: 86 Year
  Sex: Male

DRUGS (2)
  1. REVATIO [Suspect]
     Dosage: UNK
     Dates: start: 20120522
  2. LETAIRIS [Suspect]
     Indication: DRUG USE FOR UNKNOWN INDICATION
     Dosage: 10 mg, 1x/day
     Route: 048
     Dates: start: 20120612

REACTIONS (2)
  - Wheezing [Not Recovered/Not Resolved]
  - Dyspnoea [Not Recovered/Not Resolved]
